FAERS Safety Report 13055591 (Version 1)
Quarter: 2016Q4

REPORT INFORMATION
  Report Type: Spontaneous
  Country: FR (occurrence: FR)
  Receive Date: 20161222
  Receipt Date: 20161222
  Transmission Date: 20170207
  Serious: Yes (Other)
  Sender: FDA-Public Use
  Company Number: FR-PFIZER INC-2016585871

PATIENT
  Age: 73 Year
  Sex: Female

DRUGS (9)
  1. CETUXIMAB [Suspect]
     Active Substance: CETUXIMAB
     Indication: GALLBLADDER CANCER
     Dosage: 350 MG, CYCLIC
     Route: 041
     Dates: start: 20161117
  2. CAMPTO [Suspect]
     Active Substance: IRINOTECAN
     Indication: GALLBLADDER CANCER
     Dosage: 220 MG, CYCLIC
     Route: 041
     Dates: start: 20161103
  3. OXALIPLATINE KABI [Suspect]
     Active Substance: OXALIPLATIN
     Dosage: 116.5 MG, CYCLIC
     Route: 041
     Dates: start: 20161117
  4. RANITIDIN [Concomitant]
     Active Substance: RANITIDINE HYDROCHLORIDE
     Dosage: UNK
     Dates: start: 20161117
  5. METHYLPREDNISOLONE. [Concomitant]
     Active Substance: METHYLPREDNISOLONE
  6. POLARAMINE [Concomitant]
     Active Substance: DEXCHLORPHENIRAMINE MALEATE
  7. FLUOROURACILE PFIZER [Suspect]
     Active Substance: FLUOROURACIL
     Indication: GALLBLADDER CANCER
     Dosage: 600 MG, CYCLIC
     Route: 041
     Dates: start: 20161103
  8. OXALIPLATINE KABI [Suspect]
     Active Substance: OXALIPLATIN
     Indication: GALLBLADDER CANCER
     Dosage: 116.5 MG, CYCLIC
     Dates: start: 20161103
  9. FOLINIC ACID [Concomitant]
     Active Substance: LEUCOVORIN
     Dosage: UNK
     Dates: start: 20161103

REACTIONS (2)
  - Erythema [Recovered/Resolved]
  - Pruritus [Recovered/Resolved]

NARRATIVE: CASE EVENT DATE: 20161117
